FAERS Safety Report 21565628 (Version 1)
Quarter: 2022Q4

REPORT INFORMATION
  Report Type: Other
  Country: None (occurrence: US)
  Receive Date: 20221108
  Receipt Date: 20221108
  Transmission Date: 20230112
  Serious: Yes (Life-Threatening, Hospitalization, Other)
  Sender: FDA-Public Use
  Company Number: US-VGYAAN Pharmaceuticals LLC-2134624

PATIENT
  Age: 52 Year
  Sex: Female

DRUGS (5)
  1. NADOLOL [Suspect]
     Active Substance: NADOLOL
     Indication: Product used for unknown indication
     Route: 065
  2. QUETIAPINE [Concomitant]
     Active Substance: QUETIAPINE
     Route: 065
  3. OXYCODONE. [Concomitant]
     Active Substance: OXYCODONE HYDROCHLORIDE
     Route: 065
  4. ACETAMINOPHEN [Concomitant]
     Active Substance: ACETAMINOPHEN
     Route: 065
  5. CLONAZEPAM [Concomitant]
     Active Substance: CLONAZEPAM
     Route: 065

REACTIONS (2)
  - Shock [Recovered/Resolved]
  - Overdose [Recovered/Resolved]
